FAERS Safety Report 5318734-3 (Version None)
Quarter: 2007Q2

REPORT INFORMATION
  Report Type: 
  Country: None (occurrence: None)
  Receive Date: 20070508
  Receipt Date: 20070501
  Transmission Date: 20071010
  Serious: Yes (Other)
  Sender: FDA-Public Use
  Company Number: GB-BAYER-200710491BNE

PATIENT
  Age: 51 Year
  Sex: Male
  Weight: 87 kg

DRUGS (2)
  1. CIPROFLOXACIN HYDROCHLORIDE [Suspect]
     Indication: PROPHYLAXIS
     Route: 042
     Dates: start: 20070410, end: 20070410
  2. TARGOCID [Suspect]
     Indication: HIP SURGERY
     Route: 042
     Dates: start: 20070410, end: 20070410

REACTIONS (4)
  - ELECTROCARDIOGRAM CHANGE [None]
  - ERYTHEMA [None]
  - HYPOTENSION [None]
  - HYPOXIA [None]
